FAERS Safety Report 17144854 (Version 4)
Quarter: 2020Q2

REPORT INFORMATION
  Report Type: Report from Study
  Country: US (occurrence: US)
  Receive Date: 20191212
  Receipt Date: 20200403
  Transmission Date: 20200713
  Serious: No
  Sender: FDA-Public Use
  Company Number: NVSC2019US046831

PATIENT
  Sex: Female

DRUGS (1)
  1. BEOVU [Suspect]
     Active Substance: BROLUCIZUMAB-DBLL
     Indication: MACULAR DEGENERATION
     Dosage: UNK
     Route: 047
     Dates: start: 20191031

REACTIONS (3)
  - Vitreous floaters [Recovered/Resolved]
  - Vision blurred [Not Recovered/Not Resolved]
  - Visual acuity reduced [Unknown]
